FAERS Safety Report 4801929-2 (Version None)
Quarter: 2005Q4

REPORT INFORMATION
  Report Type: 
  Country: None (occurrence: None)
  Receive Date: 20051011
  Receipt Date: 20050928
  Transmission Date: 20060501
  Serious: Yes (Other)
  Sender: FDA-Public Use
  Company Number: 2005135794

PATIENT
  Sex: Female
  Weight: 99.7913 kg

DRUGS (2)
  1. NEURONTIN [Suspect]
     Indication: BIPOLAR DISORDER
  2. PROZAC [Concomitant]

REACTIONS (8)
  - ARTHRALGIA [None]
  - ARTHROPATHY [None]
  - BENIGN NEOPLASM [None]
  - ECONOMIC PROBLEM [None]
  - FIBROMYALGIA [None]
  - NECK PAIN [None]
  - NERVE COMPRESSION [None]
  - PAIN IN EXTREMITY [None]
